FAERS Safety Report 4716780-1 (Version None)
Quarter: 2005Q3

REPORT INFORMATION
  Report Type: 
  Country: None (occurrence: None)
  Receive Date: 20050714
  Receipt Date: 20050707
  Transmission Date: 20060218
  Serious: Yes (Hospitalization)
  Sender: FDA-Public Use
  Company Number: ST-2005-008488

PATIENT
  Age: 47 Year
  Sex: Male

DRUGS (3)
  1. OLMETEC [Suspect]
     Indication: HYPERTENSION
     Dosage: 20 MG QD; PO
     Route: 048
     Dates: start: 20050530, end: 20050628
  2. NEWTLIDE [Concomitant]
  3. ADALAT [Concomitant]

REACTIONS (4)
  - ANGIONEUROTIC OEDEMA [None]
  - LARYNGOPHARYNGITIS [None]
  - PHARYNGEAL OEDEMA [None]
  - WHITE BLOOD CELL COUNT INCREASED [None]
